FAERS Safety Report 8201114-0 (Version None)
Quarter: 2012Q1

REPORT INFORMATION
  Report Type: 
  Country: None (occurrence: None)
  Receive Date: 20120308
  Receipt Date: 20120224
  Transmission Date: 20120608
  Serious: Yes (Life-Threatening)
  Sender: FDA-Public Use
  Company Number: 2012MA002721

PATIENT
  Age: 60 Year

DRUGS (9)
  1. ACETAMINOPHEN [Concomitant]
  2. ZOPICLONE [Concomitant]
  3. OLANZAPINE [Concomitant]
  4. THIAMINE HCL [Concomitant]
  5. VALPROIC ACID [Concomitant]
  6. VITAMIN B COMPOUND STRONG [Concomitant]
  7. RANITIDINE [Concomitant]
  8. TRAMADOL HYDROCHLORIDE [Suspect]
     Indication: ANALGESIC THERAPY
     Dosage: 50 MG
  9. FOLIC ACID [Concomitant]

REACTIONS (1)
  - EPILEPSY [None]
